FAERS Safety Report 20952872 (Version 3)
Quarter: 2022Q3

REPORT INFORMATION
  Report Type: Spontaneous
  Country: CN (occurrence: CN)
  Receive Date: 20220613
  Receipt Date: 20220708
  Transmission Date: 20221027
  Serious: Yes (Death, Other)
  Sender: FDA-Public Use
  Company Number: CN-PFIZER INC-202200800019

PATIENT
  Age: 16 Month
  Sex: Male

DRUGS (5)
  1. CYTARABINE [Suspect]
     Active Substance: CYTARABINE
     Indication: Histiocytosis
     Dosage: (FVE TIMES IN A ROW, TWO WEEKS APART)
  2. CRIZOTINIB [Suspect]
     Active Substance: CRIZOTINIB
     Indication: Histiocytosis
     Dosage: 80 MG, DAILY
  3. CRIZOTINIB [Suspect]
     Active Substance: CRIZOTINIB
     Dosage: 100 MG, DAILY
  4. DEXAMETHASONE [Suspect]
     Active Substance: DEXAMETHASONE
     Indication: Histiocytosis
     Dosage: UNK
  5. VINCRISTINE [Suspect]
     Active Substance: VINCRISTINE
     Indication: Histiocytosis
     Dosage: UNK

REACTIONS (7)
  - Neoplasm progression [Fatal]
  - Hydrocephalus [Fatal]
  - Subdural effusion [Fatal]
  - Intracranial infection [Fatal]
  - Deep vein thrombosis [Fatal]
  - Cachexia [Fatal]
  - Pneumonia [Fatal]
